FAERS Safety Report 6711427-7 (Version None)
Quarter: 2010Q2

REPORT INFORMATION
  Report Type: 
  Country: None (occurrence: None)
  Receive Date: 20100505
  Receipt Date: 20100428
  Transmission Date: 20101027
  Serious: Yes (Hospitalization)
  Sender: FDA-Public Use
  Company Number: FR-ASTRAZENECA-2010SE09365

PATIENT
  Age: 80 Year
  Sex: Male
  Weight: 62.5 kg

DRUGS (13)
  1. SYMBICORT [Suspect]
     Route: 055
     Dates: end: 20100218
  2. MYSOLINE [Suspect]
     Indication: CONVULSION
     Route: 048
     Dates: end: 20100218
  3. MYSOLINE [Suspect]
     Indication: ESSENTIAL TREMOR
     Route: 048
     Dates: end: 20100218
  4. MYSOLINE [Suspect]
     Route: 048
     Dates: start: 20100302
  5. MYSOLINE [Suspect]
     Route: 048
     Dates: start: 20100302
  6. SINGULAIR [Suspect]
     Route: 048
     Dates: end: 20100218
  7. PIPRAM [Concomitant]
     Dates: start: 20100211, end: 20100218
  8. LOXEN [Concomitant]
     Dates: start: 20100218, end: 20100222
  9. LOXEN [Concomitant]
  10. EUPRESSYL [Concomitant]
     Dates: start: 20100219, end: 20100301
  11. CORDARONE [Concomitant]
     Dates: start: 20100219, end: 20100219
  12. CALCIPARINE [Concomitant]
     Dates: start: 20100219, end: 20100220
  13. NEXIUM [Concomitant]
     Dates: start: 20100219

REACTIONS (4)
  - AGITATION [None]
  - CONVULSION [None]
  - DRUG WITHDRAWAL SYNDROME [None]
  - PERSECUTORY DELUSION [None]
